FAERS Safety Report 7041528-8 (Version None)
Quarter: 2010Q4

REPORT INFORMATION
  Report Type: 
  Country: None (occurrence: None)
  Receive Date: 20101013
  Receipt Date: 20100629
  Transmission Date: 20110411
  Serious: No
  Sender: FDA-Public Use
  Company Number: US-ASTRAZENECA-2010SE22923

PATIENT
  Age: 22253 Day
  Sex: Female
  Weight: 49 kg

DRUGS (6)
  1. SYMBICORT [Suspect]
     Indication: CHRONIC OBSTRUCTIVE PULMONARY DISEASE
     Dosage: 160/4.5 MCG, 2 PUFFS BID
     Route: 055
  2. COMBIVENT [Concomitant]
  3. DUONEB [Concomitant]
  4. ESTRADIOL [Concomitant]
  5. SYNTHROID [Concomitant]
  6. NEFAZADONE [Concomitant]

REACTIONS (1)
  - NASOPHARYNGITIS [None]
